FAERS Safety Report 6553460-4 (Version None)
Quarter: 2010Q1

REPORT INFORMATION
  Report Type: 
  Country: None (occurrence: None)
  Receive Date: 20100122
  Receipt Date: 20100112
  Transmission Date: 20100710
  Serious: Yes (Other)
  Sender: FDA-Public Use
  Company Number: DSA_42327_2010

PATIENT
  Sex: Female

DRUGS (1)
  1. APLENZIN [Suspect]
     Indication: ANXIETY
     Dosage: (522 MG, EVERY MORNING)
     Dates: start: 20091215, end: 20100109

REACTIONS (2)
  - CONVULSION [None]
  - FALL [None]
